FAERS Safety Report 15664760 (Version 1)
Quarter: 2018Q4

REPORT INFORMATION
  Report Type: Spontaneous
  Country: US (occurrence: US)
  Receive Date: 20181116
  Receipt Date: 20181116
  Transmission Date: 20190205
  Serious: Yes (Hospitalization)
  Sender: FDA-Public Use
  Company Number: None

PATIENT
  Age: 68 Year
  Sex: Male

DRUGS (1)
  1. CEFTRIAXONE. [Suspect]
     Active Substance: CEFTRIAXONE
     Indication: PROPHYLAXIS
     Route: 042
     Dates: start: 20180710, end: 20180714

REACTIONS (1)
  - Neutropenia [None]

NARRATIVE: CASE EVENT DATE: 20181112
